FAERS Safety Report 14154772 (Version 1)
Quarter: 2017Q4

REPORT INFORMATION
  Report Type: Spontaneous
  Country: US (occurrence: US)
  Receive Date: 20171102
  Receipt Date: 20171102
  Transmission Date: 20180321
  Serious: Yes (Hospitalization)
  Sender: FDA-Public Use
  Company Number: None

PATIENT
  Age: 74 Year
  Sex: Female
  Weight: 65.25 kg

DRUGS (2)
  1. EPINEPRINE [Suspect]
     Active Substance: EPINEPHRINE
     Indication: LIPOSUCTION
     Route: 058
     Dates: start: 20171102, end: 20171102
  2. EPINEPRINE [Suspect]
     Active Substance: EPINEPHRINE
     Indication: LOCAL ANAESTHESIA
     Route: 058
     Dates: start: 20171102, end: 20171102

REACTIONS (7)
  - Vision blurred [None]
  - Infusion related reaction [None]
  - Dysarthria [None]
  - Disorientation [None]
  - Product quality issue [None]
  - Drug effect decreased [None]
  - Haemorrhage [None]

NARRATIVE: CASE EVENT DATE: 20171102
